FAERS Safety Report 15276809 (Version 1)
Quarter: 2018Q3

REPORT INFORMATION
  Report Type: Spontaneous
  Country: US (occurrence: US)
  Receive Date: 20180729
  Receipt Date: 20180729
  Transmission Date: 20181010
  Serious: Yes (Life-Threatening, Disabling, Other)
  Sender: FDA-Public Use
  Company Number: None

PATIENT
  Age: 75 Year
  Sex: Female
  Weight: 101.6 kg

DRUGS (16)
  1. VALSARTAN. [Concomitant]
     Active Substance: VALSARTAN
  2. MENTHOL. [Concomitant]
     Active Substance: MENTHOL
  3. JANUVIA [Concomitant]
     Active Substance: SITAGLIPTIN PHOSPHATE
  4. ASPIRIN. [Concomitant]
     Active Substance: ASPIRIN
  5. KUDICAUBE [Concomitant]
  6. (90 TAB) VALSARTAN) [Suspect]
     Active Substance: VALSARTAN
     Indication: HYPERTENSION
     Route: 048
     Dates: start: 20160610, end: 20180714
  7. BUMETANIDE. [Concomitant]
     Active Substance: BUMETANIDE
  8. VITAMIN D3 [Concomitant]
     Active Substance: CHOLECALCIFEROL
  9. SUPER B COMPLEX [Concomitant]
     Active Substance: CYANOCOBALAMIN\DEXPANTHENOL\NIACINAMIDE\PYRIDOXINE HYDROCHLORIDE\RIBOFLAVIN 5^-PHOSPHATE SODIUM\THIAMINE HYDROCHLORIDE\VITAMIN B COMPLEX
  10. PROBIOTIC [Concomitant]
     Active Substance: PROBIOTICS NOS
  11. PURE BAKING SODA [Concomitant]
     Active Substance: SODIUM BICARBONATE
  12. SILVER SULFADIAZINE. [Concomitant]
     Active Substance: SILVER SULFADIAZINE
  13. BIOTIN [Concomitant]
     Active Substance: BIOTIN
  14. VITAMIN E [Concomitant]
     Active Substance: .ALPHA.-TOCOPHEROL
  15. PEPTO?BISMOL [Concomitant]
     Active Substance: BISMUTH SUBSALICYLATE
  16. BACITRACIN. [Concomitant]
     Active Substance: BACITRACIN

REACTIONS (3)
  - Endometrial cancer [None]
  - Malignant neoplasm progression [None]
  - Recalled product [None]

NARRATIVE: CASE EVENT DATE: 20160610
